FAERS Safety Report 5359565-8 (Version None)
Quarter: 2007Q2

REPORT INFORMATION
  Report Type: 
  Country: None (occurrence: None)
  Receive Date: 20070530
  Receipt Date: 20070123
  Transmission Date: 20071010
  Serious: Yes (Other)
  Sender: FDA-Public Use
  Company Number: US200607001312

PATIENT
  Age: 40 Year
  Sex: Male
  Weight: 78.9 kg

DRUGS (6)
  1. ZYPREXA [Suspect]
     Indication: MOOD SWINGS
     Dosage: 20 MG, ORAL
     Route: 048
     Dates: start: 20020101
  2. QUETIAPINE FUMARATE [Concomitant]
  3. ZIPRASIDONE HCL [Concomitant]
  4. BUPROPION HCL [Concomitant]
  5. CITALOPRAM HYDROBROMIDE [Concomitant]
  6. PAROXETINE [Concomitant]

REACTIONS (1)
  - PANCREATITIS [None]
